FAERS Safety Report 20609729 (Version 1)
Quarter: 2022Q1

REPORT INFORMATION
  Report Type: Spontaneous
  Country: US (occurrence: US)
  Receive Date: 20220318
  Receipt Date: 20220318
  Transmission Date: 20220424
  Serious: No
  Sender: FDA-Public Use
  Company Number: US-drreddys-SPO/USA/22/0147639

PATIENT
  Age: 25 Year
  Sex: Female

DRUGS (1)
  1. ZENATANE [Suspect]
     Active Substance: ISOTRETINOIN
     Indication: Product used for unknown indication
     Dosage: RMA ISSUE DATE: 12 FEBRUARY 2022 03:42:08 PM,  2 NOVEMBER 2021 09:29:22 PM, 25 SEPTEMBER 2021 02:32:

REACTIONS (1)
  - Treatment noncompliance [Unknown]
